FAERS Safety Report 6504981-1 (Version None)
Quarter: 2009Q4

REPORT INFORMATION
  Report Type: 
  Country: None (occurrence: None)
  Receive Date: 20091218
  Receipt Date: 20091209
  Transmission Date: 20100525
  Serious: Yes (Other)
  Sender: FDA-Public Use
  Company Number: GB-NOVOPROD-301984

PATIENT
  Age: 52 Year
  Sex: Male
  Weight: 74 kg

DRUGS (4)
  1. NOVOSEVEN [Suspect]
     Indication: HAEMORRHAGE PROPHYLAXIS
     Dosage: 90 UG/KG BOLUS
     Route: 042
  2. NOVOSEVEN [Suspect]
     Dosage: 16.5 UG/KG/H CONTINUOUS INFUSION
     Route: 042
  3. PLATELETS [Concomitant]
  4. CRYOPRECIPITATES [Concomitant]

REACTIONS (4)
  - EXTRAVASATION [None]
  - INFUSION SITE THROMBOSIS [None]
  - OPERATIVE HAEMORRHAGE [None]
  - POSTOPERATIVE WOUND INFECTION [None]
